FAERS Safety Report 13650430 (Version 4)
Quarter: 2017Q3

REPORT INFORMATION
  Report Type: Spontaneous
  Country: US (occurrence: US)
  Receive Date: 20170614
  Receipt Date: 20170728
  Transmission Date: 20171127
  Serious: Yes (Hospitalization, Other)
  Sender: FDA-Public Use
  Company Number: US-UNITED THERAPEUTICS-UNT-2017-008596

PATIENT
  Age: 71 Year
  Sex: Female
  Weight: 78.5 kg

DRUGS (4)
  1. REMODULIN [Suspect]
     Active Substance: TREPROSTINIL
     Dosage: 0.030 ?G/KG, CONTINUING
     Route: 058
  2. AMLODIPINE [Concomitant]
     Active Substance: AMLODIPINE BESYLATE
     Indication: PRODUCT USED FOR UNKNOWN INDICATION
  3. REMODULIN [Suspect]
     Active Substance: TREPROSTINIL
     Dosage: UNK
     Route: 058
  4. REMODULIN [Suspect]
     Active Substance: TREPROSTINIL
     Indication: PULMONARY ARTERIAL HYPERTENSION
     Dosage: 0.018 ?G/KG, CONTINUING
     Route: 058
     Dates: start: 20170328

REACTIONS (11)
  - Pulmonary hypertension [Unknown]
  - Abdominal hernia [Unknown]
  - Hypoacusis [Unknown]
  - Oxygen saturation decreased [Unknown]
  - Neoplasm malignant [Unknown]
  - Fatigue [Unknown]
  - Therapy non-responder [Unknown]
  - Cough [Unknown]
  - Dyspnoea [Unknown]
  - Dehydration [Unknown]
  - Decreased appetite [Unknown]

NARRATIVE: CASE EVENT DATE: 2017
